FAERS Safety Report 17275987 (Version 1)
Quarter: 2020Q1

REPORT INFORMATION
  Report Type: Spontaneous
  Country: US (occurrence: US)
  Receive Date: 20200116
  Receipt Date: 20200116
  Transmission Date: 20200409
  Serious: No
  Sender: FDA-Public Use
  Company Number: US-GLAXOSMITHKLINE-US2020007979

PATIENT
  Age: 68 Year
  Sex: Male

DRUGS (1)
  1. ABREVA [Suspect]
     Active Substance: DOCOSANOL
     Indication: ORAL HERPES
     Dosage: UNK,(EVERYDAY IT WAS FIVE)
     Dates: start: 20200102, end: 20200113

REACTIONS (2)
  - Incorrect product administration duration [Unknown]
  - Drug ineffective [Unknown]
